FAERS Safety Report 6997344-6 (Version None)
Quarter: 2010Q3

REPORT INFORMATION
  Report Type: 
  Country: None (occurrence: None)
  Receive Date: 20100918
  Receipt Date: 20090929
  Transmission Date: 20110219
  Serious: No
  Sender: FDA-Public Use
  Company Number: US-WYE-H11298209

PATIENT
  Sex: Female
  Weight: 70.37 kg

DRUGS (4)
  1. PRISTIQ [Suspect]
     Indication: DEPRESSION
     Route: 048
     Dates: start: 20090829
  2. SIMVASTATIN [Concomitant]
  3. ESCITALOPRAM OXALATE [Concomitant]
  4. LUMIGAN [Concomitant]

REACTIONS (3)
  - CONDITION AGGRAVATED [None]
  - DRUG INEFFECTIVE [None]
  - TINNITUS [None]
